FAERS Safety Report 6783467-3 (Version None)
Quarter: 2010Q2

REPORT INFORMATION
  Report Type: 
  Country: None (occurrence: None)
  Receive Date: 20100622
  Receipt Date: 20100614
  Transmission Date: 20101027
  Serious: Yes (Hospitalization)
  Sender: FDA-Public Use
  Company Number: FR-SANOFI-AVENTIS-200911352FR

PATIENT
  Age: 79 Year
  Sex: Female

DRUGS (6)
  1. LASIX [Suspect]
     Indication: DRUG USE FOR UNKNOWN INDICATION
     Dosage: DOSE UNIT: 40 MG
     Route: 048
  2. TAREG [Interacting]
     Indication: DRUG USE FOR UNKNOWN INDICATION
     Route: 048
  3. MONICOR [Interacting]
     Indication: DRUG USE FOR UNKNOWN INDICATION
     Dosage: DOSE UNIT: 20 MG
     Route: 048
  4. VASTAREL ^BIOPHARMA^ [Interacting]
     Indication: DRUG USE FOR UNKNOWN INDICATION
     Route: 048
  5. RISPERDAL [Interacting]
     Indication: DRUG USE FOR UNKNOWN INDICATION
     Dosage: DOSE UNIT: 1 MG
     Route: 048
  6. SOTALOL [Interacting]
     Indication: DRUG USE FOR UNKNOWN INDICATION
     Route: 048

REACTIONS (4)
  - DRUG INTERACTION [None]
  - FALL [None]
  - ORTHOSTATIC HYPOTENSION [None]
  - TRAUMATIC BRAIN INJURY [None]
